FAERS Safety Report 9804904 (Version 2)
Quarter: 2014Q1

REPORT INFORMATION
  Report Type: Report from Study
  Country: JP (occurrence: JP)
  Receive Date: 20140108
  Receipt Date: 20140108
  Transmission Date: 20141002
  Serious: Yes (Other)
  Sender: FDA-Public Use
  Company Number: PHHY2013JP084830

PATIENT
  Age: 23 Year
  Sex: Male

DRUGS (2)
  1. AMN107 [Suspect]
     Indication: CHRONIC MYELOID LEUKAEMIA
     Dosage: 800 MG, DAILY
     Route: 048
     Dates: start: 20100617, end: 20110614
  2. SPRYCEL//DASATINIB [Concomitant]
     Indication: CHRONIC MYELOID LEUKAEMIA
     Dosage: 100 MG, DAILY
     Dates: start: 20110615

REACTIONS (1)
  - Gastrointestinal haemorrhage [Recovered/Resolved]
